FAERS Safety Report 15153253 (Version 1)
Quarter: 2018Q3

REPORT INFORMATION
  Report Type: Spontaneous
  Country: CH (occurrence: CH)
  Receive Date: 20180717
  Receipt Date: 20180717
  Transmission Date: 20181010
  Serious: Yes (Other)
  Sender: FDA-Public Use
  Company Number: CH-TEVA-2018-CH-927527

PATIENT
  Age: 76 Year
  Sex: Female
  Weight: 80.6 kg

DRUGS (11)
  1. TRIATEC [Concomitant]
     Route: 048
  2. PANTOZOL [Concomitant]
     Active Substance: PANTOPRAZOLE SODIUM
     Route: 048
  3. KEFZOL [Suspect]
     Active Substance: CEFAZOLIN SODIUM
     Route: 041
     Dates: start: 20180529
  4. SINTROM [Interacting]
     Active Substance: ACENOCOUMAROL
     Dosage: DURING THE HOSPITAL STAY THE DRUG DOSAGE WAS ADJUSTED ACCORDING TO FLUCTUATIONS IN THE INR, WITH ALS
     Route: 048
     Dates: start: 20180523
  5. SERTRALIN SANDOZ [Suspect]
     Active Substance: SERTRALINE HYDROCHLORIDE
     Dosage: EXACT TREATMENT START DATE NOT DOCUMENTED; ON ADMISSION TO THE HOSPITAL THE PATIENT WAS TAKING 25 MG
     Route: 048
  6. AMLODIPIN?MEPHA [Concomitant]
     Active Substance: AMLODIPINE MESYLATE
     Route: 048
  7. NOVONORM [Concomitant]
     Active Substance: REPAGLINIDE
     Route: 048
  8. EBIXA [Concomitant]
     Active Substance: MEMANTINE HYDROCHLORIDE
     Route: 048
  9. TORASEMID SANDOZ ECO [Concomitant]
     Active Substance: TORSEMIDE
     Route: 048
  10. ROCEPHIN [Suspect]
     Active Substance: CEFTRIAXONE SODIUM
     Route: 041
     Dates: start: 20180527, end: 20180529
  11. ATORVASTATIN PFIZER [Concomitant]
     Active Substance: ATORVASTATIN
     Route: 048

REACTIONS (3)
  - Coagulopathy [Recovered/Resolved]
  - Drug interaction [Recovered/Resolved]
  - International normalised ratio fluctuation [Recovered/Resolved]

NARRATIVE: CASE EVENT DATE: 201805
